FAERS Safety Report 25360899 (Version 1)
Quarter: 2025Q2

REPORT INFORMATION
  Report Type: Spontaneous
  Country: US (occurrence: US)
  Receive Date: 20250527
  Receipt Date: 20250527
  Transmission Date: 20250717
  Serious: Yes (Hospitalization, Other)
  Sender: NOVO NORDISK
  Company Number: US-NOVOPROD-1435867

PATIENT
  Sex: Male

DRUGS (1)
  1. FIASP [Suspect]
     Active Substance: INSULIN ASPART
     Indication: Product used for unknown indication

REACTIONS (3)
  - Diabetic ketoacidosis [Recovered/Resolved]
  - Device delivery system issue [Unknown]
  - Wrong technique in product usage process [Unknown]
